FAERS Safety Report 7296666-1 (Version None)
Quarter: 2011Q1

REPORT INFORMATION
  Report Type: 
  Country: None (occurrence: None)
  Receive Date: 20110216
  Receipt Date: 20110124
  Transmission Date: 20110831
  Serious: No
  Sender: FDA-Public Use
  Company Number: US-B.I. PHARMACEUTICALS,INC./RIDGEFIELD-2011-BP-02512BP

PATIENT
  Sex: Female

DRUGS (9)
  1. LEVOTHYROXINE SODIUM [Concomitant]
     Indication: HYPOTHYROIDISM
     Route: 048
  2. KEFLEX [Concomitant]
     Indication: URINARY TRACT INFECTION
     Dosage: 1500 MG
     Route: 048
     Dates: start: 20110101, end: 20110125
  3. PRADAXA [Suspect]
     Indication: ANTICOAGULANT THERAPY
     Dosage: 300 MG
     Route: 048
     Dates: start: 20110121
  4. DECADRON [Concomitant]
     Route: 048
  5. NEXIUM [Concomitant]
     Indication: GASTROOESOPHAGEAL REFLUX DISEASE
     Route: 048
  6. EMEND [Concomitant]
     Indication: NAUSEA
     Route: 048
  7. CHEMOTHERAPY [Concomitant]
     Indication: VULVAL CANCER
  8. TYLENOL W/ CODEINE NO. 3 [Concomitant]
     Indication: PAIN
     Route: 048
  9. LORAZEPAM [Concomitant]
     Indication: NAUSEA
     Route: 048

REACTIONS (2)
  - LYMPHOEDEMA [None]
  - POST PROCEDURAL HAEMORRHAGE [None]
